FAERS Safety Report 6292437-3 (Version None)
Quarter: 2009Q3

REPORT INFORMATION
  Report Type: 
  Country: None (occurrence: None)
  Receive Date: 20090730
  Receipt Date: 20090730
  Transmission Date: 20100115
  Serious: No
  Sender: FDA-Public Use
  Company Number: None

PATIENT
  Age: 24 Month
  Sex: Male
  Weight: 11.3399 kg

DRUGS (1)
  1. ICAR PEDIATRIC SUSPENSION 15 MG/ 1.25 M; HAWTHORN [Suspect]
     Indication: BLOOD IRON DECREASED
     Dosage: 1 TEASPOON ONCE A DAY PO
     Route: 048
     Dates: start: 20090727

REACTIONS (7)
  - CRYING [None]
  - EMOTIONAL DISORDER [None]
  - NIGHTMARE [None]
  - PERSONALITY CHANGE [None]
  - RHINORRHOEA [None]
  - SCREAMING [None]
  - SNEEZING [None]
